FAERS Safety Report 16303181 (Version 4)
Quarter: 2019Q3

REPORT INFORMATION
  Report Type: Report from Study
  Country: None (occurrence: CH)
  Receive Date: 20190513
  Receipt Date: 20190911
  Transmission Date: 20191004
  Serious: Yes (Hospitalization, Other)
  Sender: FDA-Public Use
  Company Number: CH-ABBVIE-19S-151-2636324-00

PATIENT
  Sex: Male

DRUGS (17)
  1. DUODOPA [Suspect]
     Active Substance: CARBIDOPA\LEVODOPA
     Indication: PARKINSON^S DISEASE
     Route: 050
     Dates: start: 20150922, end: 20151130
  2. DUODOPA [Suspect]
     Active Substance: CARBIDOPA\LEVODOPA
     Dosage: MD: 4 ML; CR DAY: 5 ML/H; CR NIGHT: 3.5 ML/H; ED: 2.2 ML, 24 HOUR THERAPY
     Route: 050
     Dates: start: 20190205, end: 20190906
  3. CYMBALTA [Concomitant]
     Active Substance: DULOXETINE HYDROCHLORIDE
     Indication: PRODUCT USED FOR UNKNOWN INDICATION
  4. VITAMIN B6 [Concomitant]
     Active Substance: PYRIDOXINE HYDROCHLORIDE
     Indication: PRODUCT USED FOR UNKNOWN INDICATION
  5. RIVOTRIL [Concomitant]
     Active Substance: CLONAZEPAM
     Indication: PRODUCT USED FOR UNKNOWN INDICATION
     Dosage: 0.5
  6. DUODOPA [Suspect]
     Active Substance: CARBIDOPA\LEVODOPA
     Dosage: MD: 4 ML, CRD: 5 ML/H, CRN, 3.4 ML/H, ED: 2.3 ML 24 H THERAPY
     Route: 050
     Dates: start: 20151130, end: 20170426
  7. VITARUBIN [Concomitant]
     Active Substance: CYANOCOBALAMIN
     Indication: PRODUCT USED FOR UNKNOWN INDICATION
     Dosage: 1000 MCG
  8. DUODOPA [Suspect]
     Active Substance: CARBIDOPA\LEVODOPA
     Dosage: MD: 3.6 ML; CRD: 5.5 ML/H; CRN: 4.0 ML/H; ED: 2.2 ML, 24 HOUR THERAPY
     Route: 050
     Dates: start: 20190906
  9. PANTOPRAZOL [Concomitant]
     Active Substance: PANTOPRAZOLE SODIUM
     Indication: PRODUCT USED FOR UNKNOWN INDICATION
  10. DUODOPA [Suspect]
     Active Substance: CARBIDOPA\LEVODOPA
     Dosage: MD: 4 ML, CR DAY: 5 ML/H, CR NIGHT, 3.5 ML/H, ED: 2 ML, 2 CASSETTES PER DAY. 24 H THERAPY
     Route: 050
     Dates: start: 20170426
  11. DUODOPA [Suspect]
     Active Substance: CARBIDOPA\LEVODOPA
     Dosage: MD 4.0ML, CR DAY 5.0ML/H, CR NIGHT 3.5ML/H, ED 2.2ML, ED BLOCKING TIME 2H, LOCK LEVEL 0
     Route: 050
  12. ACIDUM FOLICUM [Concomitant]
     Active Substance: FOLIC ACID
     Indication: PRODUCT USED FOR UNKNOWN INDICATION
  13. BENERVA [Concomitant]
     Active Substance: THIAMINE HYDROCHLORIDE
     Indication: PRODUCT USED FOR UNKNOWN INDICATION
  14. LYRICA [Concomitant]
     Active Substance: PREGABALIN
     Indication: PRODUCT USED FOR UNKNOWN INDICATION
  15. TAMSULOSIN RETARD [Concomitant]
     Active Substance: TAMSULOSIN
     Indication: PRODUCT USED FOR UNKNOWN INDICATION
  16. TARGIN RET [Concomitant]
     Indication: PRODUCT USED FOR UNKNOWN INDICATION
     Dosage: 20/10 MG
  17. CALCIMAGON [Concomitant]
     Active Substance: CALCIUM
     Indication: PRODUCT USED FOR UNKNOWN INDICATION
     Dosage: 500/800

REACTIONS (9)
  - Malaise [Recovering/Resolving]
  - Weight decreased [Unknown]
  - Fear [Unknown]
  - Balance disorder [Not Recovered/Not Resolved]
  - Spinal cord compression [Unknown]
  - Condition aggravated [Unknown]
  - Freezing phenomenon [Unknown]
  - Fall [Recovered/Resolved]
  - Akinesia [Recovering/Resolving]

NARRATIVE: CASE EVENT DATE: 2018
